FAERS Safety Report 15476978 (Version 1)
Quarter: 2018Q4

REPORT INFORMATION
  Report Type: Spontaneous
  Country: GB (occurrence: GB)
  Receive Date: 20181009
  Receipt Date: 20181009
  Transmission Date: 20190205
  Serious: Yes (Other)
  Sender: FDA-Public Use
  Company Number: GB-TEVA-2018-GB-962127

PATIENT
  Age: 87 Year
  Sex: Female
  Weight: 53 kg

DRUGS (8)
  1. GENERICS UK DOXYCYCLINE [Concomitant]
  2. GABAPENTIN. [Suspect]
     Active Substance: GABAPENTIN
     Indication: PAIN
     Dosage: UP TITRATION AS PER GUIDELINES
     Route: 048
     Dates: start: 20180814
  3. GLICLAZIDE [Concomitant]
     Active Substance: GLICLAZIDE
  4. CITALOPRAM [Concomitant]
     Active Substance: CITALOPRAM HYDROBROMIDE
  5. BUMETANIDE. [Concomitant]
     Active Substance: BUMETANIDE
  6. WARFARIN [Concomitant]
     Active Substance: WARFARIN
  7. PRAVASTATIN. [Concomitant]
     Active Substance: PRAVASTATIN
  8. BUPRENORPHINE. [Concomitant]
     Active Substance: BUPRENORPHINE

REACTIONS (1)
  - Hypoglycaemia [Recovered/Resolved]

NARRATIVE: CASE EVENT DATE: 20180815
